FAERS Safety Report 21113932 (Version 1)
Quarter: 2022Q3

REPORT INFORMATION
  Report Type: Spontaneous
  Country: US (occurrence: None)
  Receive Date: 20220721
  Receipt Date: 20220721
  Transmission Date: 20221027
  Serious: No
  Sender: FDA-Public Use
  Company Number: None

PATIENT
  Age: 7 Year
  Sex: Male

DRUGS (3)
  1. GUANFACINE HYDROCHLORIDE [Suspect]
     Active Substance: GUANFACINE HYDROCHLORIDE
  2. RITALIN [Suspect]
     Active Substance: METHYLPHENIDATE HYDROCHLORIDE
  3. GLYCOPYRROLATE [Suspect]
     Active Substance: GLYCOPYRROLATE

REACTIONS (4)
  - Product dispensing error [None]
  - Wrong product administered [None]
  - Product name confusion [None]
  - Product container issue [None]
